FAERS Safety Report 17404585 (Version 1)
Quarter: 2020Q1

REPORT INFORMATION
  Report Type: Report from Study
  Country: US (occurrence: US)
  Receive Date: 20200211
  Receipt Date: 20200211
  Transmission Date: 20200409
  Serious: Yes (Congenital Anomaly)
  Sender: FDA-Public Use
  Company Number: US-TAKEDA-2020TUS007202

PATIENT
  Sex: Female
  Weight: 4.18 kg

DRUGS (1)
  1. VEDOLIZUMAB [Suspect]
     Active Substance: VEDOLIZUMAB
     Indication: PRODUCT USE IN UNAPPROVED INDICATION
     Dosage: 300 MILLIGRAM
     Route: 063
     Dates: start: 20170215, end: 20180223

REACTIONS (3)
  - Pulmonary artery stenosis congenital [Recovered/Resolved]
  - Atrial septal defect [Recovered/Resolved]
  - Foetal exposure during pregnancy [Recovered/Resolved]
